FAERS Safety Report 4776490-1 (Version None)
Quarter: 2005Q3

REPORT INFORMATION
  Report Type: 
  Country: None (occurrence: None)
  Receive Date: 20050915
  Receipt Date: 20050831
  Transmission Date: 20060218
  Serious: Yes (Hospitalization)
  Sender: FDA-Public Use
  Company Number: DSA_26945_2005

PATIENT
  Age: 85 Year
  Sex: Male

DRUGS (3)
  1. LORAZEPAM [Suspect]
     Dosage: 1 TAB Q DAY PO
     Route: 048
     Dates: end: 20050324
  2. CORDARON X ^LABAZ^ [Concomitant]
  3. KARDEGIC     /FRA/ [Concomitant]

REACTIONS (5)
  - DEPRESSED LEVEL OF CONSCIOUSNESS [None]
  - ERYSIPELAS [None]
  - HYPOTHYROIDISM [None]
  - RENAL FAILURE [None]
  - SOMNOLENCE [None]
